FAERS Safety Report 9064008 (Version 1)
Quarter: 2013Q1

REPORT INFORMATION
  Report Type: Spontaneous
  Country: FR (occurrence: FR)
  Receive Date: 20130131
  Receipt Date: 20130131
  Transmission Date: 20140127
  Serious: Yes (Hospitalization)
  Sender: FDA-Public Use
  Company Number: FR-PFIZER INC-2013038469

PATIENT
  Age: 72 Year
  Sex: Female

DRUGS (13)
  1. ALDACTONE [Suspect]
     Indication: HYPERTENSION
     Dosage: 1 DF, 1X/DAY
     Dates: end: 20111124
  2. ALDACTONE [Suspect]
     Dosage: 0.5 DF, 1X/DAY
     Route: 048
     Dates: end: 201112
  3. LASILIX [Suspect]
     Indication: HYPERTENSION
     Dosage: 125 MG+80MG
     Dates: end: 20111124
  4. LASILIX [Suspect]
     Dosage: 125MG+40MM
     Route: 048
     Dates: start: 20111125, end: 201112
  5. ORBENINE [Suspect]
     Indication: HYPERTENSION
     Dosage: 2 DF, 2X/DAY
     Route: 048
     Dates: end: 20111205
  6. KALEORID [Suspect]
     Dosage: 1000 MG, 1X/DAY
     Route: 048
     Dates: end: 20111125
  7. BISOPROLOL [Concomitant]
     Dosage: 1 DF, 1X/DAY
  8. COUMADINE [Concomitant]
     Dosage: 0.5 DF, 1X/DAY
  9. KAYEXALATE [Concomitant]
     Dosage: 1 DF, 2X/DAY
  10. OMEPRAZOLE [Concomitant]
     Dosage: 20 MG, 1X/DAY
  11. DOLIPRANE [Concomitant]
     Dosage: 500 MG, UNK
  12. FUNGIZONE [Concomitant]
  13. ATARAX [Concomitant]
     Dosage: 50 MG, 1X/DAY

REACTIONS (4)
  - Hyperkalaemia [Recovered/Resolved]
  - Renal failure acute [Recovered/Resolved]
  - International normalised ratio increased [Recovered/Resolved]
  - Dehydration [Recovered/Resolved]
